FAERS Safety Report 15524675 (Version 3)
Quarter: 2019Q1

REPORT INFORMATION
  Report Type: Report from Study
  Country: US (occurrence: US)
  Receive Date: 20181019
  Receipt Date: 20190325
  Transmission Date: 20190417
  Serious: Yes (Death, Other)
  Sender: FDA-Public Use
  Company Number: US-BAUSCH-BL-2018-028882

PATIENT
  Sex: Male

DRUGS (1)
  1. XENAZINE [Suspect]
     Active Substance: TETRABENAZINE
     Indication: CHOREA
     Dosage: IN THE MORNING
     Route: 048

REACTIONS (4)
  - Death [Fatal]
  - End stage renal disease [Unknown]
  - Ill-defined disorder [Unknown]
  - Cardiac disorder [Unknown]
